FAERS Safety Report 9247827 (Version 1)
Quarter: 2013Q1

REPORT INFORMATION
  Report Type: Spontaneous
  Country: US (occurrence: None)
  Receive Date: 20130305
  Receipt Date: 20130305
  Transmission Date: 20140127
  Serious: Yes (Other)
  Sender: FDA-Public Use
  Company Number: 163-21880-12092200

PATIENT
  Age: 82 Year
  Sex: Female
  Weight: 53.25 kg

DRUGS (8)
  1. REVLIMID (LENALIDOMIDE) [Suspect]
     Indication: PLASMA CELL MYELOMA
     Dates: start: 20120828, end: 20120915
  2. DILTIAZEM [Concomitant]
  3. METOPROLOL (METOPROLOL) [Concomitant]
  4. DABIGATRAN (DABIGATRAN) (DABIGA TRAN) [Concomitant]
  5. LEVOTHYROXINE [Concomitant]
  6. LUTEIN (XANTAFYL) [Concomitant]
  7. VITAMIN B3 (NICOTINAMIDE) [Concomitant]
  8. POTASSIUM CHLORIDE (POTASSIUM CHLORIDE) [Concomitant]

REACTIONS (1)
  - Transient ischaemic attack [None]
